FAERS Safety Report 11510140 (Version 1)
Quarter: 2015Q3

REPORT INFORMATION
  Report Type: Spontaneous
  Country: US (occurrence: US)
  Receive Date: 20150915
  Receipt Date: 20150915
  Transmission Date: 20151125
  Serious: No
  Sender: FDA-Public Use
  Company Number: US-JNJFOC-20150702951

PATIENT
  Age: 8 Year
  Sex: Male
  Weight: 24.04 kg

DRUGS (2)
  1. CHILDRENS TYLENOL [Suspect]
     Active Substance: ACETAMINOPHEN
     Indication: PAIN IN EXTREMITY
     Dosage: 1.5 TEASPOONFUL WHEN NEEDED
     Route: 048
     Dates: start: 20150626, end: 20150628
  2. CHILDRENS TYLENOL [Suspect]
     Active Substance: ACETAMINOPHEN
     Indication: ANALGESIC THERAPY
     Dosage: 1.5 TEASPOONFUL WHEN NEEDED
     Route: 048
     Dates: start: 20150626, end: 20150628

REACTIONS (12)
  - Cold sweat [Recovered/Resolved]
  - Crying [Recovered/Resolved]
  - Tremor [Recovered/Resolved]
  - Hypersensitivity [Recovered/Resolved]
  - Aggression [Recovered/Resolved]
  - Painful respiration [Recovered/Resolved]
  - Incoherent [Recovered/Resolved]
  - Screaming [Recovered/Resolved]
  - Speech disorder [Recovered/Resolved]
  - Incorrect dose administered [Recovered/Resolved]
  - Abdominal pain upper [Recovered/Resolved]
  - Pallor [Recovered/Resolved]
